FAERS Safety Report 24866434 (Version 1)
Quarter: 2025Q1

REPORT INFORMATION
  Report Type: Spontaneous
  Country: GR (occurrence: GR)
  Receive Date: 20250121
  Receipt Date: 20250121
  Transmission Date: 20250409
  Serious: Yes (Other)
  Sender: UCB
  Company Number: GR-UCBSA-1004575

PATIENT
  Age: 12 Year
  Sex: Female
  Weight: 32 kg

DRUGS (5)
  1. KEPPRA [Suspect]
     Active Substance: LEVETIRACETAM
     Indication: Partial seizures
     Dates: start: 200112
  2. KEPPRA [Suspect]
     Active Substance: LEVETIRACETAM
  3. KEPPRA [Suspect]
     Active Substance: LEVETIRACETAM
  4. VALPROATE SODIUM [Concomitant]
     Active Substance: VALPROATE SODIUM
     Indication: Partial seizures
     Dosage: 500 MG, 2X/DAY (BID)
     Route: 048
     Dates: start: 200110
  5. CARBAMAZEPINE [Concomitant]
     Active Substance: CARBAMAZEPINE
     Indication: Partial seizures

REACTIONS (1)
  - Acute psychosis [Recovered/Resolved]

NARRATIVE: CASE EVENT DATE: 20011216
